FAERS Safety Report 5175807-6 (Version None)
Quarter: 2006Q4

REPORT INFORMATION
  Report Type: 
  Country: None (occurrence: None)
  Receive Date: 20061215
  Receipt Date: 20060714
  Transmission Date: 20070319
  Serious: No
  Sender: FDA-Public Use
  Company Number: US-AMGEN-KDL186512

PATIENT
  Sex: Male

DRUGS (1)
  1. ENBREL [Suspect]
     Indication: SJOGREN'S SYNDROME
     Route: 058
     Dates: start: 20060712

REACTIONS (4)
  - COUGH [None]
  - INFLUENZA LIKE ILLNESS [None]
  - INJECTION SITE REACTION [None]
  - PHARYNGOLARYNGEAL PAIN [None]
